FAERS Safety Report 26128518 (Version 1)
Quarter: 2025Q4

REPORT INFORMATION
  Report Type: Spontaneous
  Country: EU (occurrence: EU)
  Receive Date: 20251207
  Receipt Date: 20251207
  Transmission Date: 20260117
  Serious: Yes (Other)
  Sender: JOHNSON AND JOHNSON
  Company Number: EU-TEVA-VS-3398131

PATIENT
  Age: 50 Year
  Sex: Female

DRUGS (1)
  1. TOPAMAX [Suspect]
     Active Substance: TOPIRAMATE
     Indication: Product used for unknown indication
     Route: 048

REACTIONS (3)
  - Dementia [Unknown]
  - Migraine [Unknown]
  - Emotional disorder [Unknown]
